FAERS Safety Report 6687461-2 (Version None)
Quarter: 2010Q2

REPORT INFORMATION
  Report Type: 
  Country: None (occurrence: None)
  Receive Date: 20100419
  Receipt Date: 20100412
  Transmission Date: 20101027
  Serious: Yes (Death)
  Sender: FDA-Public Use
  Company Number: VE-MEDIMMUNE-MEDI-0011058

PATIENT
  Weight: 4 kg

DRUGS (1)
  1. SYNAGIS [Suspect]
     Dates: start: 20091208, end: 20100301

REACTIONS (1)
  - DEATH [None]
